FAERS Safety Report 24893291 (Version 3)
Quarter: 2025Q3

REPORT INFORMATION
  Report Type: Report from Study
  Country: CN (occurrence: CN)
  Receive Date: 20250128
  Receipt Date: 20250702
  Transmission Date: 20251020
  Serious: Yes (Hospitalization)
  Sender: SANOFI AVENTIS
  Company Number: CN-SA-2024SA371872

PATIENT
  Age: 55 Year
  Sex: Female
  Weight: 59.2 kg

DRUGS (27)
  1. ISATUXIMAB [Suspect]
     Active Substance: ISATUXIMAB
     Indication: Plasma cell myeloma refractory
     Route: 042
     Dates: start: 20230224, end: 20230224
  2. ISATUXIMAB [Suspect]
     Active Substance: ISATUXIMAB
     Route: 042
     Dates: start: 20241121, end: 20241121
  3. POMALIDOMIDE [Suspect]
     Active Substance: POMALIDOMIDE
     Indication: Plasma cell myeloma refractory
     Route: 048
     Dates: start: 20230224, end: 20230316
  4. POMALIDOMIDE [Suspect]
     Active Substance: POMALIDOMIDE
     Route: 048
     Dates: start: 20241024, end: 20241113
  5. DEXAMETHASONE [Suspect]
     Active Substance: DEXAMETHASONE
     Indication: Plasma cell myeloma refractory
     Route: 042
     Dates: start: 20230224, end: 20230224
  6. DEXAMETHASONE [Suspect]
     Active Substance: DEXAMETHASONE
     Route: 042
     Dates: start: 20230303, end: 20230303
  7. DEXAMETHASONE [Suspect]
     Active Substance: DEXAMETHASONE
     Route: 042
     Dates: start: 20230310, end: 20230310
  8. DEXAMETHASONE [Suspect]
     Active Substance: DEXAMETHASONE
     Route: 042
     Dates: start: 20230317, end: 20230317
  9. DEXAMETHASONE [Suspect]
     Active Substance: DEXAMETHASONE
     Route: 042
     Dates: start: 20241114, end: 20241114
  10. PANTOPRAZOLE SODIUM [Concomitant]
     Active Substance: PANTOPRAZOLE SODIUM
     Indication: Prophylaxis
     Route: 048
     Dates: start: 20230325
  11. PANTOPRAZOLE SODIUM [Concomitant]
     Active Substance: PANTOPRAZOLE SODIUM
     Route: 048
     Dates: start: 20241121, end: 20241121
  12. ENTECAVIR [Concomitant]
     Active Substance: ENTECAVIR
     Route: 048
     Dates: start: 20240511
  13. POTASSIUM CHLORIDE [Concomitant]
     Active Substance: POTASSIUM CHLORIDE
     Route: 048
     Dates: start: 20241107, end: 20241114
  14. CALCIUM CARBONATE\CHOLECALCIFEROL [Concomitant]
     Active Substance: CALCIUM CARBONATE\CHOLECALCIFEROL
     Route: 049
     Dates: start: 20241107
  15. LIVE COMBINED BIFIDOBACTERIUM, LACTOBACILLUS AND ENTEROCOCCUS [Concomitant]
     Route: 048
     Dates: start: 20241107, end: 20241110
  16. FLURBIPROFEN [Concomitant]
     Active Substance: FLURBIPROFEN
     Dates: start: 20241107, end: 20241112
  17. MONTMORILLONITE [Concomitant]
     Active Substance: MONTMORILLONITE
     Route: 048
     Dates: start: 20241107, end: 20241107
  18. MONTMORILLONITE [Concomitant]
     Active Substance: MONTMORILLONITE
     Route: 048
     Dates: start: 20241108, end: 20241109
  19. NORFLOXACIN [Concomitant]
     Active Substance: NORFLOXACIN
     Route: 048
     Dates: start: 20241109, end: 20241109
  20. LOPERAMIDE HYDROCHLORIDE [Concomitant]
     Active Substance: LOPERAMIDE HYDROCHLORIDE
     Route: 048
     Dates: start: 20241109, end: 20241109
  21. HUMAN IMMUNOGLOBULIN G [Concomitant]
     Active Substance: HUMAN IMMUNOGLOBULIN G
     Indication: Prophylaxis
     Route: 041
     Dates: start: 20241106, end: 20241107
  22. HUMAN IMMUNOGLOBULIN G [Concomitant]
     Active Substance: HUMAN IMMUNOGLOBULIN G
     Route: 041
     Dates: start: 20241120, end: 20241121
  23. HEPARIN SODIUM [Concomitant]
     Active Substance: HEPARIN SODIUM
     Indication: Prophylaxis
     Route: 040
     Dates: start: 20241107, end: 20241107
  24. HEPARIN SODIUM [Concomitant]
     Active Substance: HEPARIN SODIUM
     Route: 040
     Dates: start: 20241121, end: 20241121
  25. QI JIAO SHENG BAI [Concomitant]
     Route: 048
     Dates: start: 20241121, end: 20241204
  26. CEFTIZOXIME SODIUM [Concomitant]
     Active Substance: CEFTIZOXIME SODIUM
     Route: 065
  27. JIN SHUI BAO [Concomitant]
     Indication: Prophylaxis
     Route: 065

REACTIONS (1)
  - Bronchiectasis [Recovered/Resolved]

NARRATIVE: CASE EVENT DATE: 20241122
